FAERS Safety Report 23039909 (Version 1)
Quarter: 2023Q4

REPORT INFORMATION
  Report Type: Spontaneous
  Country: DK (occurrence: DK)
  Receive Date: 20231006
  Receipt Date: 20231006
  Transmission Date: 20240110
  Serious: Yes (Hospitalization)
  Sender: FDA-Public Use
  Company Number: None

PATIENT
  Age: 63 Year
  Sex: Male
  Weight: 78 kg

DRUGS (3)
  1. IBUPROFEN [Suspect]
     Active Substance: IBUPROFEN
     Indication: Pain
     Dosage: DOSAGE: UNKNOWN STRENGTH: UNKNOWN  LARGE CONSUMPTION THROUGH DECADES
     Route: 065
  2. IBUPROFEN [Suspect]
     Active Substance: IBUPROFEN
     Indication: Headache
     Dosage: DOSAGE: UNKNOWN STRENGTH: 200 MG CONSUMPTION THROUGH DECADES
     Dates: start: 19900101, end: 20230310
  3. ACETAMINOPHEN [Concomitant]
     Active Substance: ACETAMINOPHEN
     Indication: Headache
     Dates: start: 19900101, end: 20230310

REACTIONS (1)
  - Spinal cord haemorrhage [Recovered/Resolved]

NARRATIVE: CASE EVENT DATE: 20230304
